FAERS Safety Report 17829578 (Version 1)
Quarter: 2020Q2

REPORT INFORMATION
  Report Type: Spontaneous
  Country: US (occurrence: US)
  Receive Date: 20200527
  Receipt Date: 20200527
  Transmission Date: 20200714
  Serious: Yes (Disabling)
  Sender: FDA-Public Use
  Company Number: US-SA-2020SA134120

PATIENT
  Age: 71 Year
  Sex: Female

DRUGS (2)
  1. DUPIXENT [Suspect]
     Active Substance: DUPILUMAB
     Dosage: 1 DF, QOW
     Dates: start: 2020
  2. DUPIXENT [Suspect]
     Active Substance: DUPILUMAB
     Indication: ECZEMA
     Dosage: 2 DF, 1X
     Dates: start: 20200420, end: 20200420

REACTIONS (8)
  - Erythema [Unknown]
  - Condition aggravated [Unknown]
  - Impaired driving ability [Unknown]
  - Dermatitis [Unknown]
  - Asthenia [Unknown]
  - Skin laceration [Unknown]
  - Rash [Unknown]
  - Chest discomfort [Unknown]

NARRATIVE: CASE EVENT DATE: 202005
